FAERS Safety Report 9415337 (Version 3)
Quarter: 2014Q1

REPORT INFORMATION
  Report Type: Report from Study
  Country: AU (occurrence: AU)
  Receive Date: 20130723
  Receipt Date: 20140321
  Transmission Date: 20141002
  Serious: Yes (Hospitalization)
  Sender: FDA-Public Use
  Company Number: AU-ALEXION PHARMACEUTICALS INC.-A201301646

PATIENT
  Sex: 0

DRUGS (24)
  1. ECULIZUMAB [Suspect]
     Indication: HAEMOLYTIC URAEMIC SYNDROME
     Dosage: 900 MG, QW
     Route: 042
     Dates: start: 20130311, end: 20130402
  2. ECULIZUMAB [Suspect]
     Dosage: 1200 MG, Q2W
     Route: 042
     Dates: start: 20130412
  3. HYDRALAZINE [Concomitant]
     Indication: HYPERTENSION
     Dosage: 50 MG, QID
     Route: 048
     Dates: start: 20120222, end: 20140116
  4. LERCANIDIPINE [Concomitant]
     Indication: HYPERTENSION
     Dosage: 20 MG, QD
     Route: 048
     Dates: start: 20120307
  5. LERCANIDIPINE [Concomitant]
     Dosage: 20 MG, QD
     Route: 048
     Dates: start: 20130220
  6. LERCANIDIPINE [Concomitant]
     Dosage: 10 MG, QD
     Route: 048
     Dates: end: 20140222
  7. LERCANIDIPINE [Concomitant]
     Dosage: 10 MG, QD
     Route: 048
     Dates: start: 20140226
  8. METOPROLOL [Concomitant]
     Indication: HYPERTENSION
     Dosage: 100 MG, BID
     Route: 048
     Dates: start: 20130314
  9. GLICLAZIDE ALMUS [Concomitant]
     Indication: DIABETES MELLITUS
     Dosage: UNK
     Route: 048
     Dates: start: 20121120
  10. TACROLIMUS [Concomitant]
     Indication: IMMUNOSUPPRESSION
     Dosage: UNK
     Route: 048
     Dates: start: 20120125
  11. MYCOPHENOLATE SODIUM [Concomitant]
     Indication: IMMUNOSUPPRESSION
     Dosage: UNK
     Route: 048
     Dates: start: 20120125, end: 20130402
  12. PREDNISOLONE [Concomitant]
     Indication: IMMUNOSUPPRESSION
     Dosage: UNK
     Route: 048
     Dates: start: 20120126
  13. TRIMETHOPRIM SULFAMETHOXAZOLE [Concomitant]
     Indication: PROPHYLAXIS
     Dosage: UNK
     Route: 048
     Dates: start: 20120126, end: 20130402
  14. TRIMETHOPRIM SULFAMETHOXAZOLE [Concomitant]
     Dosage: UNK
     Route: 048
     Dates: start: 20130508
  15. OMEPRAZOLE [Concomitant]
     Indication: GASTROOESOPHAGEAL REFLUX DISEASE
     Dosage: UNK
     Route: 048
     Dates: start: 20120703
  16. CHOLECALCIFEROL [Concomitant]
     Indication: PROPHYLAXIS
     Dosage: UNK
     Route: 048
     Dates: start: 20120126
  17. SODIUM BICARBONATE [Concomitant]
     Indication: PROPHYLAXIS
     Dosage: UNK
     Route: 048
     Dates: start: 20121224
  18. DARBEPOETIN ALFA [Concomitant]
     Indication: ANAEMIA
     Dosage: UNK
     Route: 058
     Dates: start: 20121120
  19. AMPHOTERICIN [Concomitant]
     Indication: PROPHYLAXIS
     Dosage: UNK
     Route: 060
     Dates: start: 20121224, end: 20130508
  20. ASPIRIN [Concomitant]
     Indication: PROPHYLAXIS
     Dosage: UNK
     Route: 048
     Dates: start: 20130618
  21. FERROUS SULFATE [Concomitant]
     Indication: ANAEMIA
     Dosage: 325 MG
     Route: 048
     Dates: start: 20130613
  22. MAGNESIUM ASPARTATE [Concomitant]
     Indication: BLOOD MAGNESIUM DECREASED
     Dosage: UNK
     Route: 048
     Dates: start: 20121124, end: 20130314
  23. PERINDOPRIL [Concomitant]
     Indication: HYPERTENSION
     Dosage: 2.5 MG, QD
  24. CITALOPRAM [Concomitant]
     Indication: AFFECTIVE DISORDER
     Dosage: UNK
     Route: 048
     Dates: start: 20140116

REACTIONS (3)
  - Sepsis [Recovered/Resolved]
  - Renal impairment [Not Recovered/Not Resolved]
  - Escherichia sepsis [Unknown]
